FAERS Safety Report 13127638 (Version 1)
Quarter: 2017Q1

REPORT INFORMATION
  Report Type: Spontaneous
  Country: US (occurrence: US)
  Receive Date: 20170118
  Receipt Date: 20170118
  Transmission Date: 20170428
  Serious: Yes (Life-Threatening, Other)
  Sender: FDA-Public Use
  Company Number: US-MYLANLABS-2016M1058839

PATIENT

DRUGS (2)
  1. DOXYCYCLINE. [Concomitant]
     Active Substance: DOXYCYCLINE
     Indication: ACNE
     Dosage: UNK
     Dates: start: 201612, end: 201612
  2. CLINDAMYCIN AND BENZOYL PEROXIDE [Suspect]
     Active Substance: BENZOYL PEROXIDE\CLINDAMYCIN PHOSPHATE
     Indication: ACNE
     Dosage: 1 DF, QD, APPLY TO FACE
     Dates: start: 201612, end: 201612

REACTIONS (6)
  - Drug ineffective [Not Recovered/Not Resolved]
  - Lip dry [Not Recovered/Not Resolved]
  - Anaphylactic reaction [Recovered/Resolved]
  - Hypersensitivity [Not Recovered/Not Resolved]
  - Scar [Not Recovered/Not Resolved]
  - Vomiting [Recovered/Resolved]

NARRATIVE: CASE EVENT DATE: 201612
